FAERS Safety Report 23818834 (Version 1)
Quarter: 2024Q2

REPORT INFORMATION
  Report Type: Spontaneous
  Country: CN (occurrence: CN)
  Receive Date: 20240506
  Receipt Date: 20240506
  Transmission Date: 20240716
  Serious: Yes (Hospitalization)
  Sender: FDA-Public Use
  Company Number: CN-BEIGENE-BGN-2024-006549

PATIENT

DRUGS (1)
  1. TISLELIZUMAB [Suspect]
     Active Substance: TISLELIZUMAB
     Indication: Pancreatic carcinoma
     Dosage: 200 MILLIGRAM
     Route: 041
     Dates: start: 20240424

REACTIONS (4)
  - Confusional state [Recovering/Resolving]
  - Pyrexia [Recovering/Resolving]
  - Fall [Unknown]
  - Head injury [Unknown]

NARRATIVE: CASE EVENT DATE: 20240424
